FAERS Safety Report 25807634 (Version 1)
Quarter: 2025Q3

REPORT INFORMATION
  Report Type: Spontaneous
  Country: EU (occurrence: EU)
  Receive Date: 20250916
  Receipt Date: 20250916
  Transmission Date: 20251021
  Serious: Yes (Other)
  Sender: FRESENIUS KABI
  Company Number: None

PATIENT
  Age: 71 Year
  Sex: Male
  Weight: 58 kg

DRUGS (7)
  1. PEMETREXED [Suspect]
     Active Substance: PEMETREXED
     Indication: Lung adenocarcinoma
     Route: 042
     Dates: start: 20250203, end: 20250203
  2. KEYTRUDA [Suspect]
     Active Substance: PEMBROLIZUMAB
     Indication: Lung adenocarcinoma
     Route: 042
     Dates: start: 20250203, end: 20250203
  3. CARBOPLATIN [Suspect]
     Active Substance: CARBOPLATIN
     Indication: Lung adenocarcinoma
     Route: 042
     Dates: start: 20250203
  4. ZARZIO 30 MU/0.5 ml, solution for injection or infusion in pre-filled [Concomitant]
     Indication: Drug toxicity prophylaxis
     Route: 058
     Dates: start: 20250206, end: 20250210
  5. FOLIC ACID CCD 0.4 mg, tablet [Concomitant]
     Indication: Vitamin supplementation
     Dosage: 1 TO 8H
     Route: 048
     Dates: start: 20250127
  6. PREDNISOLONE [Concomitant]
     Active Substance: PREDNISOLONE
     Indication: Product used for unknown indication
     Dosage: 25 MG MORNING AND EVENING THE DAY BEFORE, THE DAY OF AND THE DAY AFTER THE NEXT COURSE OF IMMUNOCHEM
     Route: 048
  7. LOPERAMIDE HYDROCHLORIDE [Concomitant]
     Active Substance: LOPERAMIDE HYDROCHLORIDE
     Indication: Diarrhoea
     Route: 048
     Dates: start: 20250203

REACTIONS (1)
  - Hepatitis [Not Recovered/Not Resolved]

NARRATIVE: CASE EVENT DATE: 20250301
